FAERS Safety Report 7475028-8 (Version None)
Quarter: 2011Q2

REPORT INFORMATION
  Report Type: 
  Country: None (occurrence: None)
  Receive Date: 20110505
  Receipt Date: 20110224
  Transmission Date: 20111010
  Serious: Yes (Death)
  Sender: FDA-Public Use
  Company Number: JP-ACCORD-008173

PATIENT
  Age: 45 Year
  Sex: Female

DRUGS (3)
  1. MITOMYCIN [Suspect]
     Indication: SQUAMOUS CELL CARCINOMA
     Dosage: 7.00-MG/M2-
  2. PACLITAXEL [Suspect]
     Indication: SQUAMOUS CELL CARCINOMA
     Dosage: 80.00-MG/M2-1.0WEEKS/ INTRAVENOUS (NOT OTHERWISE SPECIFIED)
     Route: 042
  3. IRINOTECAN HCL [Suspect]
     Indication: SQUAMOUS CELL CARCINOMA
     Dosage: 140.00-MG/M2-

REACTIONS (4)
  - NEOPLASM PROGRESSION [None]
  - OFF LABEL USE [None]
  - METASTASES TO LIVER [None]
  - OVARIAN CANCER [None]
